FAERS Safety Report 10870861 (Version 5)
Quarter: 2015Q3

REPORT INFORMATION
  Report Type: Report from Study
  Country: JP (occurrence: JP)
  Receive Date: 20150226
  Receipt Date: 20150903
  Transmission Date: 20151125
  Serious: Yes (Other)
  Sender: FDA-Public Use
  Company Number: JP-XENOPORT, INC.-2015JP001706

PATIENT

DRUGS (14)
  1. NEO-MINOPHAGEN C [Concomitant]
     Active Substance: AMMONIUM GLYCYRRHIZATE
     Dosage: UNK
     Dates: start: 20140123, end: 20140123
  2. MYSLEE [Concomitant]
     Active Substance: ZOLPIDEM TARTRATE
     Dosage: UNK
     Dates: end: 20140205
  3. REGNITE [Suspect]
     Active Substance: GABAPENTIN ENACARBIL
     Indication: RESTLESS LEGS SYNDROME
     Dosage: 300 MG, ONCE DAILY
     Route: 048
     Dates: start: 20130828, end: 20131218
  4. REGNITE [Suspect]
     Active Substance: GABAPENTIN ENACARBIL
     Dosage: 600 MG, ONCE DAILY
     Route: 048
     Dates: start: 20131219
  5. LYRICA [Concomitant]
     Active Substance: PREGABALIN
     Dosage: UNK
  6. CYMBALTA [Concomitant]
     Active Substance: DULOXETINE HYDROCHLORIDE
     Dosage: UNK
     Dates: start: 20140401
  7. NEUROTROPIN                        /06251301/ [Concomitant]
     Dosage: UNK
     Dates: start: 20140123, end: 20140123
  8. LYRICA [Concomitant]
     Active Substance: PREGABALIN
     Dosage: UNK
     Dates: end: 20131119
  9. LOXONIN [Concomitant]
     Active Substance: LOXOPROFEN SODIUM
     Dosage: UNK
     Dates: start: 20140206
  10. CERCINE [Concomitant]
     Active Substance: DIAZEPAM
     Dosage: UNK
     Dates: start: 20130828
  11. AMOBAN [Concomitant]
     Active Substance: ZOPICLONE
     Dosage: UNK
     Dates: start: 20140206, end: 20140617
  12. LYRICA [Concomitant]
     Active Substance: PREGABALIN
     Dosage: UNK
  13. PARIET [Concomitant]
     Active Substance: RABEPRAZOLE SODIUM
     Dosage: UNK
     Dates: start: 20140206, end: 20140305
  14. LENDORMIN [Concomitant]
     Active Substance: BROTIZOLAM
     Dosage: UNK
     Dates: start: 20140618

REACTIONS (6)
  - Urticaria [Recovered/Resolved]
  - Insomnia [Recovering/Resolving]
  - Depression [Not Recovered/Not Resolved]
  - Headache [Recovering/Resolving]
  - Abdominal discomfort [Recovered/Resolved]
  - Osteoarthritis [Recovering/Resolving]

NARRATIVE: CASE EVENT DATE: 201401
